FAERS Safety Report 8571938 (Version 3)
Quarter: 2012Q4

REPORT INFORMATION
  Report Type: 
  Country: GB (occurrence: GB)
  Receive Date: 20120521
  Receipt Date: 20121112
  Transmission Date: 20130627
  Serious: Yes (Hospitalization, Other)
  Sender: FDA-Public Use
  Company Number: GB-JNJFOC-20120510214

PATIENT
  Sex: Female

DRUGS (6)
  1. DUROGESIC DTRANS [Suspect]
     Indication: PRODUCT USED FOR UNKNOWN INDICATION
     Route: 062
  2. DUROGESIC DTRANS [Suspect]
     Indication: PRODUCT USED FOR UNKNOWN INDICATION
     Route: 062
  3. DUROGESIC DTRANS [Suspect]
     Indication: PRODUCT USED FOR UNKNOWN INDICATION
     Route: 062
     Dates: start: 20090423
  4. DUROGESIC DTRANS [Suspect]
     Indication: PRODUCT USED FOR UNKNOWN INDICATION
     Route: 062
     Dates: start: 20090427
  5. DUROGESIC DTRANS [Suspect]
     Indication: PRODUCT USED FOR UNKNOWN INDICATION
     Route: 062
     Dates: start: 20120508
  6. OXYNORM [Concomitant]
     Indication: PRODUCT USED FOR UNKNOWN INDICATION
     Route: 048

REACTIONS (8)
  - Dementia [Recovered/Resolved]
  - Cerebral haemorrhage [Unknown]
  - Haemorrhage [Unknown]
  - Laceration [Unknown]
  - Fall [Recovered/Resolved]
  - Pruritus [Unknown]
  - Feeling of body temperature change [Unknown]
  - Eczema [Unknown]
